FAERS Safety Report 8838410 (Version 1)
Quarter: 2012Q4

REPORT INFORMATION
  Report Type: 
  Country: US (occurrence: US)
  Receive Date: 20121012
  Receipt Date: 20121012
  Transmission Date: 20130627
  Serious: Yes (Other)
  Sender: FDA-Public Use
  Company Number: PHHY2011US117367

PATIENT
  Age: 20 Year
  Sex: Male

DRUGS (6)
  1. OXYMETAZOLINE [Suspect]
     Route: 045
  2. PROPOFOL [Suspect]
     Dosage: 250 mg, UNK
  3. LIDOCAINE [Suspect]
  4. SUCCINYLCHOLINE CHLORIDE [Suspect]
     Indication: MUSCLE RELAXANT THERAPY
  5. SEVOFLURANE [Concomitant]
     Indication: MAINTENANCE OF ANAESTHESIA
  6. NITROUS OXIDE [Concomitant]
     Indication: MAINTENANCE OF ANAESTHESIA

REACTIONS (3)
  - Electrocardiogram ST segment elevation [Recovered/Resolved]
  - Tachycardia [Recovered/Resolved]
  - Hypotension [Recovered/Resolved]
